FAERS Safety Report 10018249 (Version 1)
Quarter: 2014Q1

REPORT INFORMATION
  Report Type: Spontaneous
  Country: US (occurrence: US)
  Receive Date: 20140318
  Receipt Date: 20140318
  Transmission Date: 20141002
  Serious: No
  Sender: FDA-Public Use
  Company Number: US-BRISTOL-MYERS SQUIBB COMPANY-19586528

PATIENT
  Age: 65 Year
  Sex: Male
  Weight: 102.04 kg

DRUGS (4)
  1. ERBITUX [Suspect]
     Indication: SQUAMOUS CELL CARCINOMA
  2. DOXYCYCLINE [Concomitant]
  3. BENADRYL [Concomitant]
     Route: 042
  4. LISINOPRIL [Concomitant]

REACTIONS (2)
  - Headache [Unknown]
  - Neck pain [Unknown]
